FAERS Safety Report 4561810-3 (Version None)
Quarter: 2005Q1

REPORT INFORMATION
  Report Type: 
  Country: None (occurrence: None)
  Receive Date: 20050126
  Receipt Date: 20040909
  Transmission Date: 20050727
  Serious: Yes (Other)
  Sender: FDA-Public Use
  Company Number: FR-MERCK-0409FRA00036

PATIENT
  Age: 68 Year
  Sex: Male
  Weight: 92 kg

DRUGS (5)
  1. ZOCOR [Suspect]
     Indication: HYPERCHOLESTEROLAEMIA
     Route: 048
     Dates: start: 20000101, end: 20040601
  2. ZOCOR [Suspect]
     Route: 048
     Dates: start: 20040606, end: 20040809
  3. MOLSIDOMINE [Concomitant]
     Indication: CORONARY ARTERY DISEASE
     Route: 048
     Dates: start: 20040501
  4. AMLODIPINE MALEATE [Concomitant]
     Indication: CORONARY ARTERY DISEASE
     Route: 048
     Dates: start: 20010101
  5. ASPIRIN [Concomitant]
     Indication: CORONARY ARTERY DISEASE
     Route: 048
     Dates: start: 19940101

REACTIONS (1)
  - TENDON RUPTURE [None]
